FAERS Safety Report 7298105-3 (Version None)
Quarter: 2011Q1

REPORT INFORMATION
  Report Type: 
  Country: None (occurrence: None)
  Receive Date: 20110217
  Receipt Date: 20110209
  Transmission Date: 20110831
  Serious: Yes (Hospitalization)
  Sender: FDA-Public Use
  Company Number: CA-JNJFOC-20110203416

PATIENT
  Sex: Male
  Weight: 66 kg

DRUGS (2)
  1. PALAFER [Concomitant]
     Indication: MINERAL SUPPLEMENTATION
  2. REMICADE [Suspect]
     Indication: CROHN'S DISEASE
     Route: 042

REACTIONS (2)
  - ILEAL STENOSIS [None]
  - INTESTINAL OBSTRUCTION [None]
